FAERS Safety Report 4383168-5 (Version None)
Quarter: 2004Q2

REPORT INFORMATION
  Report Type: 
  Country: None (occurrence: None)
  Receive Date: 20040618
  Receipt Date: 20040609
  Transmission Date: 20050107
  Serious: Yes (Other)
  Sender: FDA-Public Use
  Company Number: US-JNJFOC-20040603153

PATIENT
  Age: 45 Year
  Sex: Male

DRUGS (4)
  1. DURAGESIC [Suspect]
     Indication: PAIN
     Dosage: 150 UG/HR, 1 IN 72 HOUR, TRANSDERMAL
     Route: 062
     Dates: start: 20031201
  2. DURAGESIC [Suspect]
  3. DURAGESIC [Suspect]
  4. DURAGESIC [Suspect]

REACTIONS (12)
  - APPLICATION SITE ERYTHEMA [None]
  - BLOOD POTASSIUM DECREASED [None]
  - CONVULSION [None]
  - FALL [None]
  - FOOT FRACTURE [None]
  - HYPERHIDROSIS [None]
  - INSOMNIA [None]
  - LOSS OF CONSCIOUSNESS [None]
  - MEDICATION ERROR [None]
  - PAIN [None]
  - PANIC ATTACK [None]
  - PHARMACEUTICAL PRODUCT COMPLAINT [None]
